FAERS Safety Report 7225675-3 (Version None)
Quarter: 2011Q1

REPORT INFORMATION
  Report Type: 
  Country: None (occurrence: None)
  Receive Date: 20110113
  Receipt Date: 20110103
  Transmission Date: 20110831
  Serious: Yes (Death, Hospitalization, Other)
  Sender: FDA-Public Use
  Company Number: US-CELGENEUS-163-21880-10100888

PATIENT
  Sex: Female

DRUGS (10)
  1. TORSEMIDE [Concomitant]
     Route: 048
  2. POTASSIUM [Concomitant]
     Route: 048
     Dates: end: 20101001
  3. EFFEXOR XR [Concomitant]
     Indication: DEPRESSION
     Route: 048
  4. REVLIMID [Suspect]
     Indication: MULTIPLE MYELOMA
     Route: 048
     Dates: start: 20090701
  5. REVLIMID [Suspect]
     Route: 048
     Dates: start: 20091001
  6. REVLIMID [Suspect]
     Route: 048
     Dates: start: 20100801
  7. OMEPRAZOLE [Concomitant]
     Route: 048
  8. TOPROL-XL [Concomitant]
     Indication: HYPERTENSION
     Route: 048
  9. REVLIMID [Suspect]
     Route: 048
     Dates: start: 20100928, end: 20101005
  10. DIURETICS [Concomitant]
     Route: 065
     Dates: end: 20101001

REACTIONS (3)
  - RENAL FAILURE ACUTE [None]
  - DEHYDRATION [None]
  - URINARY TRACT INFECTION [None]
